FAERS Safety Report 4653348-X (Version None)
Quarter: 2005Q2

REPORT INFORMATION
  Report Type: 
  Country: None (occurrence: None)
  Receive Date: 20050503
  Receipt Date: 20050420
  Transmission Date: 20051028
  Serious: Yes (Other)
  Sender: FDA-Public Use
  Company Number: 2005006212

PATIENT
  Age: 57 Year
  Sex: Female
  Weight: 60 kg

DRUGS (5)
  1. NEURONTIN [Suspect]
     Indication: NEUROPATHIC PAIN
     Dosage: 1800 MG (600 MG, 3 IN 1 D), ORAL
     Route: 048
     Dates: start: 20040909, end: 20050107
  2. ESTRADIOL [Concomitant]
  3. DYDROGESTERONE (DYDROGESTERONE) [Concomitant]
  4. CLONAZEPAM [Concomitant]
  5. TRAMADOL HCL [Concomitant]

REACTIONS (8)
  - AMNESIA [None]
  - BLOOD THYROID STIMULATING HORMONE INCREASED [None]
  - FATIGUE [None]
  - HIGH DENSITY LIPOPROTEIN INCREASED [None]
  - HYPERCHOLESTEROLAEMIA [None]
  - HYPERTRIGLYCERIDAEMIA [None]
  - SOMNOLENCE [None]
  - WEIGHT INCREASED [None]
